FAERS Safety Report 19011576 (Version 1)
Quarter: 2021Q1

REPORT INFORMATION
  Report Type: Spontaneous
  Country: IN (occurrence: IN)
  Receive Date: 20210316
  Receipt Date: 20210316
  Transmission Date: 20210420
  Serious: Yes (Hospitalization, Other)
  Sender: FDA-Public Use
  Company Number: IN-ACCORD-219178

PATIENT
  Age: 81 Year
  Sex: Male

DRUGS (3)
  1. ROPINIROLE/ROPINIROLE HYDROCHLORIDE [Suspect]
     Active Substance: ROPINIROLE HYDROCHLORIDE
     Indication: PARKINSON^S DISEASE
     Dosage: STRENGTH 0.5 MG
  2. RASAGILINE/RASAGILINE MESYLATE [Suspect]
     Active Substance: RASAGILINE MESYLATE
     Indication: PARKINSON^S DISEASE
     Dosage: AT BEDTIME
  3. CARBIDOPA/LEVODOPA [Suspect]
     Active Substance: CARBIDOPA\LEVODOPA
     Indication: PARKINSON^S DISEASE
     Dosage: 125 MG 1/2 TAB QID

REACTIONS (3)
  - Chorea [Recovered/Resolved]
  - Dystonia [Recovered/Resolved]
  - Hallucination, visual [Recovered/Resolved]
